FAERS Safety Report 24050645 (Version 1)
Quarter: 2024Q3

REPORT INFORMATION
  Report Type: Spontaneous
  Country: DE (occurrence: DE)
  Receive Date: 20240704
  Receipt Date: 20240704
  Transmission Date: 20241017
  Serious: Yes (Other)
  Sender: SANOFI AVENTIS
  Company Number: DE-SANOFI-02092806

PATIENT
  Age: 89 Year
  Sex: Female

DRUGS (1)
  1. DUPIXENT [Suspect]
     Active Substance: DUPILUMAB
     Dosage: 400 MG, 1X

REACTIONS (4)
  - Asthmatic crisis [Unknown]
  - Drug hypersensitivity [Unknown]
  - Rash [Unknown]
  - Off label use [Unknown]
